FAERS Safety Report 7117862-X (Version None)
Quarter: 2010Q4

REPORT INFORMATION
  Report Type: 
  Country: None (occurrence: None)
  Receive Date: 20101118
  Receipt Date: 20101118
  Transmission Date: 20110411
  Serious: Yes (Other)
  Sender: FDA-Public Use
  Company Number: None

PATIENT
  Age: 67 Year
  Sex: Female
  Weight: 95.5 kg

DRUGS (2)
  1. VENLAFAXINE [Suspect]
     Indication: DEPRESSION
     Dates: start: 20100701
  2. VENLAFAXINE [Suspect]
     Indication: DEPRESSION
     Dates: start: 20100801

REACTIONS (15)
  - ALOPECIA [None]
  - BALANCE DISORDER [None]
  - BLOOD CHOLESTEROL INCREASED [None]
  - CONTUSION [None]
  - DRY MOUTH [None]
  - DYSGRAPHIA [None]
  - FALL [None]
  - FATIGUE [None]
  - HEADACHE [None]
  - HEART RATE INCREASED [None]
  - HYPERHIDROSIS [None]
  - PRODUCT SUBSTITUTION ISSUE [None]
  - RESTLESS LEGS SYNDROME [None]
  - TREMOR [None]
  - VISUAL IMPAIRMENT [None]
